FAERS Safety Report 8481717-9 (Version None)
Quarter: 2012Q3

REPORT INFORMATION
  Report Type: 
  Country: None (occurrence: None)
  Receive Date: 20120702
  Receipt Date: 20120628
  Transmission Date: 20120928
  Serious: Yes (Life-Threatening, Hospitalization)
  Sender: FDA-Public Use
  Company Number: NL-ASTRAZENECA-2012SE43700

PATIENT
  Age: 77 Year
  Sex: Female

DRUGS (2)
  1. METFORMIN HCL [Suspect]
     Indication: DIABETES MELLITUS
     Route: 048
     Dates: start: 20030101, end: 20120530
  2. CRESTOR [Suspect]
     Route: 048
     Dates: start: 20060101, end: 20120530

REACTIONS (1)
  - LACTIC ACIDOSIS [None]
